FAERS Safety Report 5728854-7 (Version None)
Quarter: 2008Q2

REPORT INFORMATION
  Report Type: 
  Country: None (occurrence: None)
  Receive Date: 20080506
  Receipt Date: 20080428
  Transmission Date: 20081010
  Serious: Yes (Other)
  Sender: FDA-Public Use
  Company Number: US-ABBOTT-08P-163-0449254-00

PATIENT
  Age: 64 Year
  Sex: Female

DRUGS (4)
  1. CALCITRIOL [Suspect]
     Indication: DRUG USE FOR UNKNOWN INDICATION
     Dosage: NOT REPORTED
  2. RISEDRONATE SODIUM [Suspect]
     Indication: OSTEOPOROSIS
     Dosage: NOT REPORTED
  3. CALCIUM-SANDOZ [Concomitant]
     Indication: OSTEOPOROSIS
     Dosage: NOT REPORTED
  4. ERGOCALCIFEROL [Concomitant]
     Indication: OSTEOPOROSIS
     Dosage: NOT REPORTED

REACTIONS (1)
  - HYPERCALCAEMIA OF MALIGNANCY [None]
